FAERS Safety Report 12507629 (Version 2)
Quarter: 2016Q3

REPORT INFORMATION
  Report Type: Spontaneous
  Country: JP (occurrence: JP)
  Receive Date: 20160629
  Receipt Date: 20160726
  Transmission Date: 20161109
  Serious: Yes (Other)
  Sender: FDA-Public Use
  Company Number: PHJP2016JP017966

PATIENT
  Age: 44 Year
  Sex: Female

DRUGS (1)
  1. ZOLEDRONATE [Suspect]
     Active Substance: ZOLEDRONIC ACID
     Indication: BREAST CANCER METASTATIC
     Dosage: UNK
     Route: 041
     Dates: start: 201512

REACTIONS (3)
  - Osteonecrosis of external auditory canal [Not Recovered/Not Resolved]
  - Ear pain [Unknown]
  - Otorrhoea [Unknown]

NARRATIVE: CASE EVENT DATE: 201512
